FAERS Safety Report 7288274-3 (Version None)
Quarter: 2011Q1

REPORT INFORMATION
  Report Type: 
  Country: None (occurrence: None)
  Receive Date: 20110211
  Receipt Date: 20110207
  Transmission Date: 20110831
  Serious: Yes (Other)
  Sender: FDA-Public Use
  Company Number: US-ASTRAZENECA-2008UW01141

PATIENT
  Age: 47 Year
  Sex: Female
  Weight: 90.7 kg

DRUGS (9)
  1. SEROQUEL [Suspect]
     Dosage: 25-900 MG
     Route: 048
     Dates: start: 20030617
  2. SEROQUEL [Suspect]
     Route: 048
     Dates: start: 20050404
  3. TOPAMAX [Concomitant]
     Dates: start: 20050404
  4. ABILIFY [Concomitant]
  5. LITHIUM [Concomitant]
     Dates: start: 20050404
  6. SEROQUEL [Suspect]
     Indication: DEPRESSION
     Dosage: 200 MG TO 900 MG
     Route: 048
     Dates: start: 19970101, end: 20061205
  7. SEROQUEL [Suspect]
     Dosage: 25-900 MG
     Route: 048
     Dates: start: 20030617
  8. SEROQUEL [Suspect]
     Indication: BIPOLAR DISORDER
     Dosage: 200 MG TO 900 MG
     Route: 048
     Dates: start: 19970101, end: 20061205
  9. SEROQUEL [Suspect]
     Route: 048
     Dates: start: 20050404

REACTIONS (3)
  - TYPE 2 DIABETES MELLITUS [None]
  - DIABETIC NEPHROPATHY [None]
  - OBESITY [None]
